FAERS Safety Report 13680041 (Version 3)
Quarter: 2017Q3

REPORT INFORMATION
  Report Type: Spontaneous
  Country: US (occurrence: US)
  Receive Date: 20170622
  Receipt Date: 20170726
  Transmission Date: 20171127
  Serious: No
  Sender: FDA-Public Use
  Company Number: US-PFIZER INC-2017268841

PATIENT
  Sex: Female
  Weight: 58.5 kg

DRUGS (1)
  1. PREMPRO [Suspect]
     Active Substance: ESTROGENS, CONJUGATED\MEDROXYPROGESTERONE ACETATE
     Dosage: UNK
     Dates: end: 2014

REACTIONS (7)
  - Head injury [Unknown]
  - Malaise [Unknown]
  - Bone density decreased [Unknown]
  - Concussion [Unknown]
  - Memory impairment [Unknown]
  - Accident [Unknown]
  - Disturbance in attention [Unknown]
